FAERS Safety Report 7463164-1 (Version None)
Quarter: 2011Q2

REPORT INFORMATION
  Report Type: 
  Country: None (occurrence: None)
  Receive Date: 20110506
  Receipt Date: 20110503
  Transmission Date: 20111010
  Serious: Yes (Hospitalization)
  Sender: FDA-Public Use
  Company Number: FR-ABBOTT-11P-056-0722991-00

PATIENT
  Age: 64 Year
  Sex: Female

DRUGS (1)
  1. FENOFIBRATE [Suspect]
     Indication: HYPERCHOLESTEROLAEMIA
     Route: 048

REACTIONS (5)
  - LIVER FUNCTION TEST ABNORMAL [None]
  - MYALGIA [None]
  - FATIGUE [None]
  - FULL BLOOD COUNT ABNORMAL [None]
  - OEDEMA PERIPHERAL [None]
